FAERS Safety Report 17237784 (Version 6)
Quarter: 2020Q1

REPORT INFORMATION
  Report Type: Report from Study
  Country: CO (occurrence: CO)
  Receive Date: 20200106
  Receipt Date: 20200313
  Transmission Date: 20200409
  Serious: Yes (Hospitalization)
  Sender: FDA-Public Use
  Company Number: CO-SA-2018SA166321

PATIENT
  Age: 23 Year
  Sex: Male

DRUGS (2)
  1. ALEMTUZUMAB [Suspect]
     Active Substance: ALEMTUZUMAB
     Dosage: 12 MG, QD
     Route: 041
     Dates: start: 20180619, end: 20180620
  2. ALEMTUZUMAB [Suspect]
     Active Substance: ALEMTUZUMAB
     Indication: MULTIPLE SCLEROSIS
     Dosage: 12 MG, QD
     Route: 041
     Dates: start: 20180618, end: 20180618

REACTIONS (13)
  - Rash [Recovering/Resolving]
  - Bilirubin urine present [Recovered/Resolved]
  - Pain in extremity [Recovered/Resolved]
  - Lymphocyte count decreased [Recovered/Resolved]
  - Varicella zoster virus infection [Recovering/Resolving]
  - Blood creatinine decreased [Recovered/Resolved]
  - Blood thyroid stimulating hormone decreased [Unknown]
  - Protein urine [Not Recovered/Not Resolved]
  - Pain [Recovering/Resolving]
  - Migraine [Recovered/Resolved]
  - Blood thyroid stimulating hormone increased [Recovered/Resolved]
  - White blood cell count decreased [Recovered/Resolved]
  - Urobilinogen urine increased [Not Recovered/Not Resolved]

NARRATIVE: CASE EVENT DATE: 20180618
